FAERS Safety Report 25982772 (Version 2)
Quarter: 2025Q4

REPORT INFORMATION
  Report Type: Spontaneous
  Country: US (occurrence: US)
  Receive Date: 20251031
  Receipt Date: 20251202
  Transmission Date: 20260118
  Serious: No
  Sender: MICRO LABS LIMITED
  Company Number: US-MICRO LABS LIMITED-ML2025-05545

PATIENT
  Sex: Male

DRUGS (1)
  1. DORZOLAMIDE HYDROCHLORIDE OPHTHALMIC SOLUTION [Suspect]
     Active Substance: DORZOLAMIDE HYDROCHLORIDE
     Indication: Glaucoma
     Dosage: DOSE: ONE DROP IN EACH EYE?FREQUENCY: THREE TIMES A DAY, IN THE MORNING, AFTERNOON, AND ?NIGHT.
     Route: 047
     Dates: start: 202510

REACTIONS (3)
  - Product dose omission issue [Unknown]
  - Product container issue [Unknown]
  - Product quality issue [Unknown]

NARRATIVE: CASE EVENT DATE: 20251001
